FAERS Safety Report 8173014-6 (Version None)
Quarter: 2012Q1

REPORT INFORMATION
  Report Type: 
  Country: None (occurrence: None)
  Receive Date: 20120229
  Receipt Date: 20120220
  Transmission Date: 20120608
  Serious: Yes (Hospitalization, Other)
  Sender: FDA-Public Use
  Company Number: US-BAYER-2011-047016

PATIENT
  Age: 26 Year
  Sex: Female
  Weight: 49.887 kg

DRUGS (3)
  1. ALPRAZOLAM [Concomitant]
     Dosage: 0.25 MG, UNK
     Dates: start: 20090223
  2. MOVIPREP [Concomitant]
     Dosage: UNK
     Dates: start: 20090422
  3. YAZ [Suspect]
     Indication: ACNE
     Dosage: UNK
     Route: 048
     Dates: start: 20070213, end: 20090601

REACTIONS (8)
  - PAIN [None]
  - CHOLECYSTITIS [None]
  - EMOTIONAL DISTRESS [None]
  - PSYCHOLOGICAL TRAUMA [None]
  - BILIARY DYSKINESIA [None]
  - INJURY [None]
  - ANXIETY [None]
  - ABDOMINAL PAIN UPPER [None]
